FAERS Safety Report 5011559-8 (Version None)
Quarter: 2006Q2

REPORT INFORMATION
  Report Type: 
  Country: None (occurrence: None)
  Receive Date: 20060524
  Receipt Date: 20060515
  Transmission Date: 20061013
  Serious: Yes (Death, Other)
  Sender: FDA-Public Use
  Company Number: 2006-04-0363

PATIENT
  Age: 58 Year
  Sex: Male

DRUGS (4)
  1. TEMODAL [Suspect]
     Indication: BRAIN NEOPLASM
     Dosage: 400 MG QD ORAL
     Route: 048
     Dates: start: 20060201, end: 20060201
  2. DECADRON [Suspect]
     Dosage: SEE IMAGE
     Route: 048
     Dates: start: 20060201
  3. CLOBAZAM [Concomitant]
  4. TEGRETOL [Concomitant]

REACTIONS (5)
  - DISEASE PROGRESSION [None]
  - GLIOMA [None]
  - HAEMORRHAGE INTRACRANIAL [None]
  - MYOPATHY [None]
  - NUCLEAR MAGNETIC RESONANCE IMAGING ABNORMAL [None]
